FAERS Safety Report 8186249-3 (Version None)
Quarter: 2012Q1

REPORT INFORMATION
  Report Type: 
  Country: None (occurrence: None)
  Receive Date: 20120306
  Receipt Date: 20100225
  Transmission Date: 20120608
  Serious: Yes (Hospitalization)
  Sender: FDA-Public Use
  Company Number: US-BAYER-201011657NA

PATIENT
  Age: 28 Year
  Sex: Female
  Weight: 69.091 kg

DRUGS (5)
  1. LEXAPRO [Concomitant]
     Indication: ANXIETY
     Route: 065
  2. SINGULAIR [Concomitant]
     Indication: MULTIPLE ALLERGIES
     Route: 048
  3. ZYRTEC [Concomitant]
     Indication: MULTIPLE ALLERGIES
     Route: 048
  4. MIRENA [Suspect]
     Indication: CONTRACEPTION
     Dosage: 20 ?G/D, CONT
     Route: 015
     Dates: start: 20090925, end: 20100115
  5. LEXAPRO [Concomitant]
     Indication: DEPRESSION

REACTIONS (5)
  - AMENORRHOEA [None]
  - HYPERSENSITIVITY [None]
  - SWELLING FACE [None]
  - URTICARIA [None]
  - THROAT TIGHTNESS [None]
